FAERS Safety Report 4567855-1 (Version None)
Quarter: 2005Q1

REPORT INFORMATION
  Report Type: 
  Country: None (occurrence: None)
  Receive Date: 20050202
  Receipt Date: 20041111
  Transmission Date: 20050727
  Serious: No
  Sender: FDA-Public Use
  Company Number: US-GLAXOSMITHKLINE-A0533585A

PATIENT
  Age: 74 Year
  Sex: Male

DRUGS (7)
  1. AVANDAMET [Suspect]
     Dosage: 1TAB TWICE PER DAY
     Route: 048
     Dates: start: 20041106
  2. TERAZOSIN [Concomitant]
  3. FINASTERIDE [Concomitant]
  4. ATENOLOL [Concomitant]
  5. VALSARTAN [Concomitant]
  6. TRIAMTERENE [Concomitant]
  7. ZOCOR [Concomitant]

REACTIONS (1)
  - DRUG INEFFECTIVE [None]
